FAERS Safety Report 7146167-6 (Version None)
Quarter: 2010Q4

REPORT INFORMATION
  Report Type: 
  Country: None (occurrence: None)
  Receive Date: 20101208
  Receipt Date: 20101130
  Transmission Date: 20110411
  Serious: Yes (Other)
  Sender: FDA-Public Use
  Company Number: US-US-EMD SERONO, INC.-7023696

PATIENT
  Sex: Female

DRUGS (4)
  1. REBIF [Suspect]
     Indication: MULTIPLE SCLEROSIS
     Route: 058
     Dates: start: 20100302
  2. UNSPECIFIED MEDICATIONS [Concomitant]
  3. ADVIL [Concomitant]
     Indication: PREMEDICATION
     Dates: start: 20100101
  4. XANAX [Concomitant]
     Indication: PREMEDICATION
     Dates: start: 20100101

REACTIONS (7)
  - CERVICAL SPINAL STENOSIS [None]
  - INJECTION SITE ABSCESS [None]
  - INJECTION SITE ERYTHEMA [None]
  - INJECTION SITE MASS [None]
  - INTERVERTEBRAL DISC PROTRUSION [None]
  - LIVER FUNCTION TEST ABNORMAL [None]
  - THYROID NEOPLASM [None]
